FAERS Safety Report 19918933 (Version 1)
Quarter: 2021Q4

REPORT INFORMATION
  Report Type: Spontaneous
  Country: US (occurrence: US)
  Receive Date: 20211004
  Receipt Date: 20211004
  Transmission Date: 20220303
  Serious: No
  Sender: FDA-Public Use
  Company Number: US-BLUEPRINT MEDICINES CORPORATION-SP-US-2021-001619

PATIENT
  Age: 69 Year
  Sex: Male

DRUGS (1)
  1. AYVAKIT [Suspect]
     Active Substance: AVAPRITINIB
     Indication: Gastrointestinal stromal tumour
     Route: 048
     Dates: start: 20210706

REACTIONS (6)
  - Localised infection [Not Recovered/Not Resolved]
  - Disorientation [Not Recovered/Not Resolved]
  - Sputum retention [Not Recovered/Not Resolved]
  - Swelling face [Not Recovered/Not Resolved]
  - Confusional state [Not Recovered/Not Resolved]
  - Aphasia [Not Recovered/Not Resolved]

NARRATIVE: CASE EVENT DATE: 20210907
